FAERS Safety Report 9020356 (Version 1)
Quarter: 2013Q1

REPORT INFORMATION
  Report Type: Spontaneous
  Country: US (occurrence: US)
  Receive Date: 20130119
  Receipt Date: 20130119
  Transmission Date: 20140127
  Serious: No
  Sender: FDA-Public Use
  Company Number: US-ALLERGAN-1208709US

PATIENT
  Age: 66 None
  Sex: Male
  Weight: 99.77 kg

DRUGS (7)
  1. BOTOX? [Suspect]
     Indication: MUSCLE SPASTICITY
     Dosage: 1000 UNITS, SINGLE
     Route: 030
     Dates: start: 20090204, end: 20090204
  2. BOTOX? [Suspect]
     Dosage: UNK UNK, SINGLE
     Route: 030
     Dates: start: 20081105, end: 20081105
  3. BOTOX? [Suspect]
     Dosage: UNK UNK, SINGLE
     Route: 030
     Dates: start: 20090506, end: 20090506
  4. PLAVIX [Concomitant]
     Indication: CEREBROVASCULAR ACCIDENT PROPHYLAXIS
     Dosage: UNK
  5. ASPIRIN [Concomitant]
     Indication: ANTICOAGULANT THERAPY
  6. PRAVASTATIN [Concomitant]
     Indication: BLOOD CHOLESTEROL
  7. NAZADINE [Concomitant]
     Indication: SLEEP DISORDER
     Dosage: UNK UNK, QPM

REACTIONS (1)
  - Erectile dysfunction [Recovered/Resolved]
